FAERS Safety Report 14711058 (Version 1)
Quarter: 2018Q2

REPORT INFORMATION
  Report Type: Spontaneous
  Country: FR (occurrence: FR)
  Receive Date: 20180403
  Receipt Date: 20180403
  Transmission Date: 20180711
  Serious: Yes (Other)
  Sender: FDA-Public Use
  Company Number: FR-MERCK KGAA-2045026

PATIENT
  Age: 38 Year
  Sex: Female
  Weight: 94 kg

DRUGS (1)
  1. NOVOTHYROX [Suspect]
     Active Substance: LEVOTHYROXINE SODIUM
     Indication: THYROIDECTOMY
     Route: 048
     Dates: end: 20180130

REACTIONS (9)
  - Arthralgia [Recovering/Resolving]
  - Disturbance in attention [Recovering/Resolving]
  - Diffuse alopecia [Recovering/Resolving]
  - Onychoclasis [Recovering/Resolving]
  - Memory impairment [Recovering/Resolving]
  - Hypothyroidism [Recovering/Resolving]
  - Dizziness [Recovering/Resolving]
  - Constipation [Recovering/Resolving]
  - Weight increased [Recovering/Resolving]

NARRATIVE: CASE EVENT DATE: 201710
